FAERS Safety Report 7353448-X (Version None)
Quarter: 2011Q1

REPORT INFORMATION
  Report Type: 
  Country: None (occurrence: None)
  Receive Date: 20110315
  Receipt Date: 20110307
  Transmission Date: 20110831
  Serious: Yes (Other)
  Sender: FDA-Public Use
  Company Number: US-PERRIGO-11US001655

PATIENT
  Sex: Female
  Weight: 29.252 kg

DRUGS (1)
  1. IBUPROFEN [Suspect]
     Indication: PYREXIA
     Dosage: 250 MG, SINGLE
     Route: 048
     Dates: start: 20110225, end: 20110225

REACTIONS (7)
  - ORAL PRURITUS [None]
  - URTICARIA [None]
  - LIP SWELLING [None]
  - PHARYNGEAL OEDEMA [None]
  - VOMITING [None]
  - HYPERSENSITIVITY [None]
  - HEART RATE INCREASED [None]
